FAERS Safety Report 9915897 (Version 1)
Quarter: 2014Q1

REPORT INFORMATION
  Report Type: Spontaneous
  Country: US (occurrence: None)
  Receive Date: 20140219
  Receipt Date: 20140219
  Transmission Date: 20141002
  Serious: Yes (Disabling)
  Sender: FDA-Public Use
  Company Number: None

PATIENT
  Age: 61 Year
  Sex: Female
  Weight: 63.5 kg

DRUGS (1)
  1. LEVOFLOXACIN [Suspect]
     Indication: INFECTION
     Dosage: 1 PILL ONCE DAILY
     Route: 048
     Dates: start: 20131204, end: 20131206

REACTIONS (8)
  - Vision blurred [None]
  - Tendon disorder [None]
  - Tendon pain [None]
  - Swelling [None]
  - Gait disturbance [None]
  - Back pain [None]
  - Musculoskeletal pain [None]
  - Pain in extremity [None]
